FAERS Safety Report 10258327 (Version 2)
Quarter: 2014Q3

REPORT INFORMATION
  Report Type: Spontaneous
  Country: US (occurrence: US)
  Receive Date: 20140625
  Receipt Date: 20140704
  Transmission Date: 20150326
  Serious: No
  Sender: FDA-Public Use
  Company Number: US-ASTRAZENECA-2014SE45844

PATIENT
  Age: 54 Year
  Sex: Male
  Weight: 99.3 kg

DRUGS (3)
  1. SEROQUEL XR [Suspect]
     Active Substance: QUETIAPINE FUMARATE
     Indication: DEPRESSION
     Dosage: 350 MG IN THE MORNING AND 350 MG AT NIGHT
     Route: 048
     Dates: start: 2014
  2. SEROQUEL XR [Suspect]
     Active Substance: QUETIAPINE FUMARATE
     Indication: BIPOLAR DISORDER
     Dosage: 350 MG IN THE MORNING AND 350 MG AT NIGHT
     Route: 048
     Dates: start: 2014
  3. CLONAZEOAM [Concomitant]
     Indication: DEPRESSION
     Route: 048

REACTIONS (9)
  - Drug screen positive [Not Recovered/Not Resolved]
  - Night sweats [Not Recovered/Not Resolved]
  - Musculoskeletal stiffness [Unknown]
  - Decreased activity [Not Recovered/Not Resolved]
  - Dizziness [Not Recovered/Not Resolved]
  - Hyperhidrosis [Unknown]
  - Drug ineffective [Not Recovered/Not Resolved]
  - Body temperature increased [Unknown]
  - Off label use [Not Recovered/Not Resolved]

NARRATIVE: CASE EVENT DATE: 2014
